FAERS Safety Report 10083476 (Version 1)
Quarter: 2014Q2

REPORT INFORMATION
  Report Type: Spontaneous
  Country: US (occurrence: None)
  Receive Date: 20140416
  Receipt Date: 20140416
  Transmission Date: 20141212
  Serious: No
  Sender: FDA-Public Use
  Company Number: None

PATIENT
  Age: 40 Year
  Sex: Female
  Weight: 217.73 kg

DRUGS (2)
  1. OMEPRAZOLE [Suspect]
     Indication: GASTROOESOPHAGEAL REFLUX DISEASE
     Dosage: 1 PILL, ONCE DAILY, TAKEN BY MOUTH
     Route: 048
     Dates: start: 20140404, end: 20140409
  2. OMEPRAZOLE [Suspect]
     Indication: PROPHYLAXIS
     Dosage: 1 PILL, ONCE DAILY, TAKEN BY MOUTH
     Route: 048
     Dates: start: 20140404, end: 20140409

REACTIONS (15)
  - Diarrhoea [None]
  - Nausea [None]
  - Pain in extremity [None]
  - Myalgia [None]
  - Muscle spasms [None]
  - Migraine [None]
  - Vision blurred [None]
  - Pain [None]
  - Acne [None]
  - Insomnia [None]
  - Urticaria [None]
  - Dry mouth [None]
  - Thirst [None]
  - Menstrual disorder [None]
  - Pain [None]
